FAERS Safety Report 4389453-5 (Version None)
Quarter: 2004Q3

REPORT INFORMATION
  Report Type: 
  Country: None (occurrence: None)
  Receive Date: 20040702
  Receipt Date: 20040130
  Transmission Date: 20050211
  Serious: Yes (Hospitalization, Disabling, Other)
  Sender: FDA-Public Use
  Company Number: US-MERCK-0402USA00006

PATIENT
  Age: 33 Year
  Sex: Female

DRUGS (12)
  1. ADVIL [Concomitant]
     Route: 065
     Dates: start: 20000424, end: 20011129
  2. MOTRIN [Concomitant]
     Route: 065
     Dates: start: 20000424, end: 20011129
  3. METHYLPHENIDATE [Concomitant]
     Route: 065
  4. NAPROXEN [Concomitant]
     Route: 065
     Dates: start: 20000424, end: 20011129
  5. ALEVE [Concomitant]
     Route: 065
     Dates: start: 20000424, end: 20011129
  6. VIOXX [Suspect]
     Indication: TEMPOROMANDIBULAR JOINT SYNDROME
     Route: 048
     Dates: start: 20000907, end: 20010201
  7. VIOXX [Suspect]
     Route: 048
     Dates: start: 20010201, end: 20011201
  8. ZOLOFT [Concomitant]
     Route: 065
  9. [THERAPY UNSPECIFIED] [Concomitant]
     Route: 065
     Dates: start: 20000424, end: 20011129
  10. TYLENOL [Concomitant]
     Route: 065
     Dates: start: 20000424, end: 20011129
  11. ORTHO-NOVUM [Concomitant]
     Indication: CONTRACEPTION
     Route: 065
  12. NECON [Concomitant]
     Indication: ORAL CONTRACEPTION
     Route: 065

REACTIONS (6)
  - CEREBRAL ARTERY OCCLUSION [None]
  - CEREBRAL INFARCTION [None]
  - HYPERCHOLESTEROLAEMIA [None]
  - HYPERSENSITIVITY [None]
  - SINUSITIS [None]
  - TEMPOROMANDIBULAR JOINT SYNDROME [None]
